FAERS Safety Report 10421492 (Version 1)
Quarter: 2014Q3

REPORT INFORMATION
  Report Type: Spontaneous
  Country: AU (occurrence: AU)
  Receive Date: 20140901
  Receipt Date: 20140901
  Transmission Date: 20150326
  Serious: Yes (Other)
  Sender: FDA-Public Use
  Company Number: AU-MERCK-1408AUS015407

PATIENT
  Age: 53 Year

DRUGS (3)
  1. PEGASYS [Suspect]
     Active Substance: PEGINTERFERON ALFA-2A
     Dosage: 180 DOSE UNSPEC, QW
     Route: 058
     Dates: start: 20140326, end: 20140326
  2. TELAPREVIR [Suspect]
     Active Substance: TELAPREVIR
     Dosage: UNK
  3. RIBAVIRIN. [Suspect]
     Active Substance: RIBAVIRIN
     Dosage: 1200 DOSE UNSPEC
     Route: 048
     Dates: start: 20140326, end: 20140502

REACTIONS (2)
  - Blindness unilateral [Unknown]
  - Haemoglobin decreased [Unknown]

NARRATIVE: CASE EVENT DATE: 2014
